FAERS Safety Report 10932404 (Version 1)
Quarter: 2015Q1

REPORT INFORMATION
  Report Type: Spontaneous
  Country: US (occurrence: None)
  Receive Date: 20150318
  Receipt Date: 20150318
  Transmission Date: 20150721
  Serious: Yes (Hospitalization)
  Sender: FDA-Public Use
  Company Number: INS201503-000084

PATIENT
  Age: 76 Year
  Sex: Female
  Weight: 70.3 kg

DRUGS (7)
  1. LEVETIRACETAM. [Concomitant]
     Active Substance: LEVETIRACETAM
  2. BUTALBITAL [Concomitant]
     Active Substance: BUTALBITAL
  3. SIMVASTATIN. [Concomitant]
     Active Substance: SIMVASTATIN
  4. OXYCODONE [Concomitant]
     Active Substance: OXYCODONE
  5. SUBSYS [Suspect]
     Active Substance: FENTANYL
     Indication: PAIN
     Dates: start: 201410, end: 2015
  6. METOPROLOL [Concomitant]
     Active Substance: METOPROLOL
  7. GABAPENTIN. [Concomitant]
     Active Substance: GABAPENTIN

REACTIONS (7)
  - Asthenia [None]
  - Pulmonary thrombosis [None]
  - Dizziness [None]
  - Pain [None]
  - Malaise [None]
  - Incoherent [None]
  - Off label use [None]

NARRATIVE: CASE EVENT DATE: 2015
